FAERS Safety Report 21112371 (Version 3)
Quarter: 2022Q4

REPORT INFORMATION
  Report Type: Spontaneous
  Country: US (occurrence: US)
  Receive Date: 20220721
  Receipt Date: 20221215
  Transmission Date: 20230113
  Serious: Yes (Disabling)
  Sender: FDA-Public Use
  Company Number: US-SA-SAC20220718001907

PATIENT
  Age: 62 Year
  Sex: Female

DRUGS (1)
  1. AUBAGIO [Suspect]
     Active Substance: TERIFLUNOMIDE
     Indication: Multiple sclerosis
     Dosage: 14 MG, QD
     Route: 048
     Dates: start: 20191011

REACTIONS (9)
  - Walking aid user [Not Recovered/Not Resolved]
  - Musculoskeletal stiffness [Unknown]
  - Visual impairment [Unknown]
  - Fall [Unknown]
  - Mobility decreased [Unknown]
  - Fatigue [Unknown]
  - Bladder discomfort [Unknown]
  - Spinal operation [Unknown]
  - Pain [Not Recovered/Not Resolved]
